FAERS Safety Report 7549380-9 (Version None)
Quarter: 2011Q2

REPORT INFORMATION
  Report Type: 
  Country: None (occurrence: None)
  Receive Date: 20110615
  Receipt Date: 20040525
  Transmission Date: 20111010
  Serious: Yes (Death)
  Sender: FDA-Public Use
  Company Number: PHHO2003JP16023

PATIENT
  Sex: Male

DRUGS (8)
  1. ACECOL [Concomitant]
     Indication: HYPERTENSION
  2. HYPADIL [Concomitant]
     Indication: HYPERTENSION
  3. LOCHOLEST [Suspect]
     Dosage: 20 MG/DAY
     Dates: start: 20030101
  4. CONIEL [Concomitant]
     Indication: HYPERTENSION
  5. LOCHOLEST [Suspect]
     Indication: HYPERLIPIDAEMIA
     Dosage: 20 MG/DAY
     Dates: start: 20020122
  6. LOCHOLEST [Suspect]
     Dosage: 30 MG/DAY
     Dates: end: 20030101
  7. WARFARIN SODIUM [Concomitant]
     Indication: VENOUS THROMBOSIS
  8. BENZBROMARONE [Concomitant]
     Indication: HYPERURICAEMIA

REACTIONS (1)
  - DEATH [None]
